FAERS Safety Report 6375360-5 (Version None)
Quarter: 2009Q3

REPORT INFORMATION
  Report Type: 
  Country: None (occurrence: None)
  Receive Date: 20090924
  Receipt Date: 20090908
  Transmission Date: 20100115
  Serious: Yes (Other)
  Sender: FDA-Public Use
  Company Number: FR-CELGENEUS-056-20484-09090537

PATIENT
  Sex: Male
  Weight: 67 kg

DRUGS (4)
  1. INNOHEP [Suspect]
     Indication: THROMBOPHLEBITIS
     Dosage: CURATIVE DOSE
     Route: 058
     Dates: start: 20090525, end: 20090610
  2. DEXTROPROPOXYPHENE [Concomitant]
     Indication: DRUG USE FOR UNKNOWN INDICATION
     Route: 065
  3. FONDAPARINUX SODIUM [Concomitant]
     Indication: THROMBOSIS
     Route: 065
  4. DI-ANTALVIC [Concomitant]
     Indication: DRUG USE FOR UNKNOWN INDICATION
     Route: 065

REACTIONS (1)
  - THROMBOCYTOSIS [None]
